FAERS Safety Report 8218103-2 (Version None)
Quarter: 2012Q1

REPORT INFORMATION
  Report Type: 
  Country: None (occurrence: None)
  Receive Date: 20120316
  Receipt Date: 20120316
  Transmission Date: 20120608
  Serious: No
  Sender: FDA-Public Use
  Company Number: None

PATIENT
  Sex: Female
  Weight: 93 kg

DRUGS (2)
  1. HEPARIN [Suspect]
     Dosage: 7,000 UNITS IV
     Route: 042
  2. HEPARIN [Suspect]
     Indication: PERCUTANEOUS CORONARY INTERVENTION
     Dosage: 5000 X 1 IV
     Route: 042
     Dates: start: 20120303

REACTIONS (1)
  - PROTHROMBIN TIME PROLONGED [None]
